FAERS Safety Report 15255091 (Version 2)
Quarter: 2018Q3

REPORT INFORMATION
  Report Type: Report from Study
  Country: CN (occurrence: CN)
  Receive Date: 20180808
  Receipt Date: 20180828
  Transmission Date: 20181010
  Serious: Yes (Hospitalization)
  Sender: FDA-Public Use
  Company Number: CN-SA-2017SA166168

PATIENT
  Age: 64 Year
  Sex: Female
  Weight: 61.5 kg

DRUGS (10)
  1. ACARBOSE. [Suspect]
     Active Substance: ACARBOSE
     Indication: TYPE 2 DIABETES MELLITUS
     Dosage: 100 MG,TID
     Route: 065
     Dates: start: 201612
  2. INSULIN GLARGINE [Suspect]
     Active Substance: INSULIN GLARGINE
     Indication: TYPE 2 DIABETES MELLITUS
     Dosage: 68 DF,QD
     Route: 058
     Dates: start: 20170425, end: 20171018
  3. GLICLAZIDE [Suspect]
     Active Substance: GLICLAZIDE
     Indication: TYPE 2 DIABETES MELLITUS
     Dosage: 90 MG,QD
     Route: 065
     Dates: start: 201612
  4. CEFPROZIL. [Concomitant]
     Active Substance: CEFPROZIL
     Dosage: UNK UNK,UNK
     Route: 048
     Dates: start: 20170821, end: 20170904
  5. SODIUM CHLORIDE. [Concomitant]
     Active Substance: SODIUM CHLORIDE
     Dosage: 250 ML, QD
     Route: 042
  6. CO?DIOVAN [Concomitant]
     Active Substance: HYDROCHLOROTHIAZIDE\VALSARTAN
     Indication: HYPERTENSION
     Dosage: 1 DF, QD
     Route: 048
     Dates: start: 201505
  7. CITICOLINE [Concomitant]
     Active Substance: CITICOLINE
     Dosage: 3 DF, QD
     Route: 048
     Dates: start: 20170824, end: 20170904
  8. LUMBROKINASE [Concomitant]
     Dosage: 6 DF, QD
     Route: 048
     Dates: start: 20170824, end: 20170904
  9. INSULIN GLARGINE [Suspect]
     Active Substance: INSULIN GLARGINE
     Dosage: 30 U
     Route: 058
     Dates: start: 20171018, end: 20171018
  10. CEFDINIR. [Concomitant]
     Active Substance: CEFDINIR
     Dosage: 3 DF, QD
     Route: 048
     Dates: start: 20170824, end: 20170904

REACTIONS (3)
  - Cerebral infarction [Recovered/Resolved]
  - Lung infection [Recovered/Resolved]
  - Cataract [Recovered/Resolved]

NARRATIVE: CASE EVENT DATE: 20170822
